FAERS Safety Report 9302707 (Version 1)
Quarter: 2013Q2

REPORT INFORMATION
  Report Type: Spontaneous
  Country: US (occurrence: US)
  Receive Date: 20130522
  Receipt Date: 20130522
  Transmission Date: 20140414
  Serious: Yes (Other)
  Sender: FDA-Public Use
  Company Number: PHEH2013US011014

PATIENT
  Sex: Male

DRUGS (11)
  1. TEKTURNA [Suspect]
  2. LASIX [Concomitant]
  3. ALLOPURINOL [Concomitant]
  4. HYDROCHOROTHIAZIDE [Concomitant]
  5. GLIPIZDE [Concomitant]
  6. METOPROLOL [Concomitant]
  7. METFORMIN [Concomitant]
  8. SIMVASTATIN [Concomitant]
  9. RAMIPRIL [Concomitant]
  10. GABAPENTIN [Concomitant]
  11. INSULIN [Concomitant]

REACTIONS (10)
  - Basal ganglia stroke [Unknown]
  - Tongue paralysis [Unknown]
  - VIIth nerve paralysis [Unknown]
  - Muscular weakness [Unknown]
  - Dysarthria [Unknown]
  - Diabetes mellitus [Unknown]
  - Neuropathy peripheral [Unknown]
  - Hypertension [Unknown]
  - Dyslipidaemia [Unknown]
  - Gout [Unknown]
